FAERS Safety Report 6114955-0 (Version None)
Quarter: 2009Q1

REPORT INFORMATION
  Report Type: 
  Country: None (occurrence: None)
  Receive Date: 20090313
  Receipt Date: 20090304
  Transmission Date: 20090719
  Serious: Yes (Life-Threatening)
  Sender: FDA-Public Use
  Company Number: GB-TEVA-187362ISR

PATIENT
  Age: 42 Year
  Sex: Female
  Weight: 80 kg

DRUGS (1)
  1. MELOXICAM [Suspect]
     Route: 048
     Dates: start: 19980101

REACTIONS (1)
  - PULMONARY EMBOLISM [None]
